FAERS Safety Report 6692212-1 (Version None)
Quarter: 2010Q2

REPORT INFORMATION
  Report Type: 
  Country: None (occurrence: None)
  Receive Date: 20100422
  Receipt Date: 20090601
  Transmission Date: 20101027
  Serious: No
  Sender: FDA-Public Use
  Company Number: US-ASTRAZENECA-2009UW13803

PATIENT
  Sex: Female

DRUGS (4)
  1. TOPROL-XL [Suspect]
     Route: 048
  2. PRILOSEC [Suspect]
     Route: 048
  3. ZYRTEC [Concomitant]
  4. PREMARIN [Concomitant]

REACTIONS (1)
  - NASAL CONGESTION [None]
